FAERS Safety Report 7252730 (Version 3)
Quarter: 2013Q2

REPORT INFORMATION
  Report Type: Spontaneous
  Country: FR (occurrence: FR)
  Receive Date: 20100122
  Receipt Date: 20130612
  Transmission Date: 20140414
  Serious: Yes (Other)
  Sender: FDA-Public Use
  Company Number: FR-ABBOTT-10P-087-0619080-00

PATIENT
  Age: 74 Year
  Sex: Female

DRUGS (6)
  1. AKINETON [Suspect]
     Indication: PRODUCT USED FOR UNKNOWN INDICATION
     Dosage: PROLONGED-RELEASE COATED TABLET
     Route: 048
     Dates: start: 20090421, end: 20090626
  2. DEPAKINE CHRONO [Suspect]
     Indication: PRODUCT USED FOR UNKNOWN INDICATION
     Dosage: EXTENDED RELEASE, COATED SCORED TABLETS
     Route: 048
     Dates: start: 20090421, end: 20090708
  3. URBANYL [Suspect]
     Indication: PRODUCT USED FOR UNKNOWN INDICATION
     Route: 048
     Dates: start: 20090429, end: 20090623
  4. STILNOX [Suspect]
     Indication: PRODUCT USED FOR UNKNOWN INDICATION
     Route: 048
     Dates: start: 20090421, end: 20090713
  5. RISPERDAL [Suspect]
     Indication: PRODUCT USED FOR UNKNOWN INDICATION
     Route: 048
     Dates: start: 20090423, end: 20090626
  6. TIAPRIDE [Suspect]
     Indication: PRODUCT USED FOR UNKNOWN INDICATION
     Route: 048
     Dates: start: 20090608, end: 20090623

REACTIONS (6)
  - Thrombocytopenia [Recovered/Resolved]
  - Hyponatraemia [None]
  - Hypoproteinaemia [None]
  - Hypocalcaemia [None]
  - Hypomagnesaemia [None]
  - Hypokalaemia [None]
